FAERS Safety Report 14330217 (Version 1)
Quarter: 2017Q4

REPORT INFORMATION
  Report Type: Spontaneous
  Country: TR (occurrence: TR)
  Receive Date: 20171227
  Receipt Date: 20171227
  Transmission Date: 20180321
  Serious: Yes (Death, Hospitalization)
  Sender: FDA-Public Use
  Company Number: TR-ALEXION PHARMACEUTICALS INC.-A201714529

PATIENT
  Sex: Female

DRUGS (2)
  1. SOLIRIS [Suspect]
     Active Substance: ECULIZUMAB
     Dosage: 1200 MG, UNK
     Route: 065
     Dates: start: 20161124
  2. SOLIRIS [Suspect]
     Active Substance: ECULIZUMAB
     Indication: MYASTHENIA GRAVIS
     Dosage: UNK
     Route: 065
     Dates: start: 20160301, end: 20161124

REACTIONS (10)
  - Respiratory distress [Unknown]
  - Thrombocytopenia [Fatal]
  - Electrolyte imbalance [Unknown]
  - Lung infection [Fatal]
  - Cytomegalovirus enteritis [Fatal]
  - Haemorrhage [Unknown]
  - Cardiac arrest [Fatal]
  - Fatigue [Unknown]
  - Asthenia [Unknown]
  - Pancytopenia [Unknown]

NARRATIVE: CASE EVENT DATE: 20170919
